FAERS Safety Report 21105871 (Version 3)
Quarter: 2022Q4

REPORT INFORMATION
  Report Type: Report from Study
  Country: CA (occurrence: CA)
  Receive Date: 20220720
  Receipt Date: 20221215
  Transmission Date: 20230112
  Serious: Yes (Other)
  Sender: FDA-Public Use
  Company Number: CA-GLAXOSMITHKLINE-CA2022GSK070438

PATIENT

DRUGS (19)
  1. BUPROPION HYDROCHLORIDE [Suspect]
     Active Substance: BUPROPION HYDROCHLORIDE
     Indication: Depression
     Dosage: 150 MG, QD
     Route: 048
     Dates: end: 20220402
  2. CONTRAVE [Suspect]
     Active Substance: BUPROPION HYDROCHLORIDE\NALTREXONE HYDROCHLORIDE
     Indication: Weight decreased
     Dosage: 1 DF, BID,90/8MG 2 TABS AM 1 TAB PM (1 IN 12 HRS)
     Route: 048
     Dates: start: 20220629, end: 20220701
  3. CONTRAVE [Suspect]
     Active Substance: BUPROPION HYDROCHLORIDE\NALTREXONE HYDROCHLORIDE
     Dosage: 1 DF, QD,90/8MG 1 IN 24 HRS
     Route: 048
     Dates: start: 20220308, end: 20220315
  4. CONTRAVE [Suspect]
     Active Substance: BUPROPION HYDROCHLORIDE\NALTREXONE HYDROCHLORIDE
     Dosage: 1 DF, QD,90/8MG 1 IN 24 HRS
     Route: 048
     Dates: start: 20220321, end: 20220327
  5. CONTRAVE [Suspect]
     Active Substance: BUPROPION HYDROCHLORIDE\NALTREXONE HYDROCHLORIDE
     Dosage: 1 DF, BID,90/8MG 1 IN 12 HRS
     Route: 048
     Dates: start: 20220328, end: 20220628
  6. CONTRAVE [Suspect]
     Active Substance: BUPROPION HYDROCHLORIDE\NALTREXONE HYDROCHLORIDE
     Dosage: 1 DF, BID,90/8MG 1 IN 12 HRS
     Route: 048
     Dates: start: 20220702, end: 202207
  7. CONTRAVE [Suspect]
     Active Substance: BUPROPION HYDROCHLORIDE\NALTREXONE HYDROCHLORIDE
     Dosage: 1 DF, BID(90/8MG, 2 TABS AM 1 TAB PM (1 IN 12 HR))
     Route: 048
     Dates: start: 202207, end: 20220907
  8. CONTRAVE [Suspect]
     Active Substance: BUPROPION HYDROCHLORIDE\NALTREXONE HYDROCHLORIDE
     Dosage: 2 DF 90/8MG 1 IN 12 HRS
     Route: 048
     Dates: start: 20220908
  9. OZEMPIC [Suspect]
     Active Substance: SEMAGLUTIDE
     Indication: Diabetes mellitus
     Dosage: 2 MG 1 IN 1 WK
     Route: 065
     Dates: end: 20220513
  10. OZEMPIC [Suspect]
     Active Substance: SEMAGLUTIDE
     Dosage: 1 MG 1 IN 1 WK
     Route: 065
     Dates: start: 20220520
  11. GABAPENTIN [Concomitant]
     Active Substance: GABAPENTIN
     Indication: Neuralgia
     Dosage: UNK UNK, BID 1 IN 12 HR
     Route: 048
  12. CRESTOR [Concomitant]
     Active Substance: ROSUVASTATIN CALCIUM
     Indication: Blood cholesterol abnormal
     Dosage: UNK BEDTIME
     Route: 048
  13. MIRTAZAPINE [Concomitant]
     Active Substance: MIRTAZAPINE
     Indication: Sleep disorder
     Dosage: UNK, QD BEDTIME
     Route: 048
  14. ADALAT [Concomitant]
     Active Substance: NIFEDIPINE
     Indication: Hypertension
     Dosage: UNK, QD MORNING
     Route: 048
  15. ATENOLOL [Concomitant]
     Active Substance: ATENOLOL
     Indication: Hypertension
     Dosage: UNK, QD MORNING
     Route: 048
  16. TELMISARTAN [Concomitant]
     Active Substance: TELMISARTAN
     Indication: Hypertension
     Dosage: 80 MG, QD
     Route: 048
  17. TELMISARTAN [Concomitant]
     Active Substance: TELMISARTAN
     Dosage: UNK, QD ,80/25 MG
     Route: 048
  18. RABEPRAZOLE [Concomitant]
     Active Substance: RABEPRAZOLE
     Indication: Gastrointestinal disorder
     Dosage: UNK, QD MORNING
     Route: 048
  19. METFORMIN [Concomitant]
     Active Substance: METFORMIN HYDROCHLORIDE
     Indication: Diabetes mellitus
     Dosage: 1 DF, BID 1 IN 12 HRS

REACTIONS (14)
  - Diverticulitis [Unknown]
  - COVID-19 [Unknown]
  - Abdominal discomfort [Not Recovered/Not Resolved]
  - Stool analysis abnormal [Not Recovered/Not Resolved]
  - Vomiting [Recovering/Resolving]
  - Nausea [Not Recovered/Not Resolved]
  - Asthenia [Unknown]
  - Dry mouth [Not Recovered/Not Resolved]
  - Condition aggravated [Not Recovered/Not Resolved]
  - Therapy interrupted [Unknown]
  - Therapy cessation [Unknown]
  - Contraindicated product administered [Unknown]
  - Drug titration error [Unknown]
  - Inappropriate schedule of product administration [Unknown]

NARRATIVE: CASE EVENT DATE: 20220101
